FAERS Safety Report 7671765-0 (Version None)
Quarter: 2011Q3

REPORT INFORMATION
  Report Type: 
  Country: None (occurrence: None)
  Receive Date: 20110809
  Receipt Date: 20110805
  Transmission Date: 20111222
  Serious: Yes (Other)
  Sender: FDA-Public Use
  Company Number: US-GLAXOSMITHKLINE-A0939899A

PATIENT
  Age: 19 Year
  Sex: Female

DRUGS (1)
  1. ABREVA [Suspect]
     Indication: ORAL HERPES
     Route: 061
     Dates: start: 20110802, end: 20110803

REACTIONS (6)
  - MUSCLE SPASMS [None]
  - LYMPHADENOPATHY [None]
  - VIITH NERVE PARALYSIS [None]
  - HYPOAESTHESIA [None]
  - EYELID FUNCTION DISORDER [None]
  - PHARYNGEAL OEDEMA [None]
